FAERS Safety Report 8889507 (Version 4)
Quarter: 2013Q1

REPORT INFORMATION
  Report Type: Spontaneous
  Country: DE (occurrence: DE)
  Receive Date: 20121107
  Receipt Date: 20130109
  Transmission Date: 20140127
  Serious: Yes (Other)
  Sender: FDA-Public Use
  Company Number: DE-JNJFOC-20121013783

PATIENT
  Age: 22 Year
  Sex: Male
  Weight: 63 kg

DRUGS (6)
  1. XEPLION [Suspect]
     Indication: SCHIZOPHRENIA
     Route: 030
     Dates: start: 20121023
  2. XEPLION [Suspect]
     Indication: SCHIZOPHRENIA
     Route: 030
     Dates: start: 20120910
  3. XEPLION [Suspect]
     Indication: SCHIZOPHRENIA
     Route: 030
     Dates: start: 20120925
  4. BELOC ZOK [Suspect]
     Indication: TACHYCARDIA
     Dosage: BELOC ZOK 47.5
     Route: 048
  5. CLOZAPINE [Suspect]
     Indication: TACHYCARDIA
     Route: 048
     Dates: start: 201207
  6. ATOSIL [Concomitant]
     Indication: RESTLESSNESS
     Route: 048

REACTIONS (7)
  - Vertigo [Recovered/Resolved]
  - Fall [Recovered/Resolved]
  - Laceration [Recovered/Resolved]
  - Gastroenteritis viral [Recovered/Resolved]
  - Dehydration [Recovered/Resolved]
  - Tachycardia [Recovered/Resolved]
  - Inappropriate schedule of drug administration [Recovered/Resolved]
